FAERS Safety Report 9867027 (Version 1)
Quarter: 2014Q1

REPORT INFORMATION
  Report Type: Spontaneous
  Country: US (occurrence: None)
  Receive Date: 20140203
  Receipt Date: 20140203
  Transmission Date: 20141002
  Serious: Yes (Other)
  Sender: FDA-Public Use
  Company Number: None

PATIENT
  Age: 41 Year
  Sex: Female
  Weight: 70.31 kg

DRUGS (1)
  1. LEVOFLOXACIN 500 MG LUPIN [Suspect]
     Indication: UPPER RESPIRATORY TRACT INFECTION
     Route: 048
     Dates: start: 20121015, end: 20121025

REACTIONS (11)
  - Paraesthesia [None]
  - Hypoaesthesia [None]
  - Pain in extremity [None]
  - Joint crepitation [None]
  - Pain in extremity [None]
  - Nervous system disorder [None]
  - Inadequate analgesia [None]
  - Arthralgia [None]
  - Joint range of motion decreased [None]
  - Ill-defined disorder [None]
  - Hypoaesthesia [None]
